FAERS Safety Report 20747230 (Version 1)
Quarter: 2022Q2

REPORT INFORMATION
  Report Type: Spontaneous
  Country: US (occurrence: US)
  Receive Date: 20220425
  Receipt Date: 20220425
  Transmission Date: 20220721
  Serious: Yes (Hospitalization)
  Sender: FDA-Public Use
  Company Number: US-SEATTLE GENETICS-2022SGN03726

PATIENT
  Age: 68 Year
  Sex: Female

DRUGS (1)
  1. TUKYSA [Suspect]
     Active Substance: TUCATINIB
     Indication: Product used for unknown indication
     Dosage: UNK
     Route: 065
     Dates: start: 202204

REACTIONS (8)
  - Memory impairment [Unknown]
  - Asthenia [Unknown]
  - Abnormal behaviour [Unknown]
  - Speech disorder [Unknown]
  - Fatigue [Unknown]
  - Dysstasia [Unknown]
  - Daydreaming [Unknown]
  - Gait inability [Unknown]

NARRATIVE: CASE EVENT DATE: 20220417
